FAERS Safety Report 8084077-0 (Version None)
Quarter: 2012Q1

REPORT INFORMATION
  Report Type: 
  Country: None (occurrence: None)
  Receive Date: 20120128
  Receipt Date: 20110208
  Transmission Date: 20120608
  Serious: No
  Sender: FDA-Public Use
  Company Number: US-ABBOTT-11P-163-0703367-00

PATIENT
  Age: 42 Year
  Sex: Female

DRUGS (5)
  1. ZOLOFT [Concomitant]
     Indication: PRODUCT USED FOR UNKNOWN INDICATION
  2. IRON [Concomitant]
     Indication: PRODUCT USED FOR UNKNOWN INDICATION
  3. HUMIRA [Suspect]
     Indication: CROHN'S DISEASE
     Dosage: LOADING DOSE, 80 MG DAY 15
     Dates: start: 20110101
  4. XANAX [Concomitant]
     Indication: PRODUCT USED FOR UNKNOWN INDICATION
  5. PREDNISONE TAB [Concomitant]
     Indication: PRODUCT USED FOR UNKNOWN INDICATION

REACTIONS (5)
  - DRUG DOSE OMISSION [None]
  - DEVICE MALFUNCTION [None]
  - IMPAIRED HEALING [None]
  - SINUSITIS [None]
  - ABDOMINAL PAIN [None]
